FAERS Safety Report 16409118 (Version 1)
Quarter: 2019Q2

REPORT INFORMATION
  Report Type: Spontaneous
  Country: US (occurrence: US)
  Receive Date: 20190610
  Receipt Date: 20190610
  Transmission Date: 20190711
  Serious: No
  Sender: FDA-Public Use
  Company Number: US-009507513-1905USA010050

PATIENT
  Age: 4 Year
  Sex: Male

DRUGS (2)
  1. TEMODAR [Suspect]
     Active Substance: TEMOZOLOMIDE
     Indication: GLIOMA
  2. AVASTIN [Concomitant]
     Active Substance: BEVACIZUMAB
     Indication: GLIOMA

REACTIONS (1)
  - Product use issue [Unknown]
